FAERS Safety Report 8165004-4 (Version None)
Quarter: 2012Q1

REPORT INFORMATION
  Report Type: 
  Country: None (occurrence: None)
  Receive Date: 20120227
  Receipt Date: 20120213
  Transmission Date: 20120608
  Serious: No
  Sender: FDA-Public Use
  Company Number: US-BIOGENIDEC-2012BI005708

PATIENT
  Sex: Male

DRUGS (2)
  1. AVONEX [Suspect]
     Indication: MULTIPLE SCLEROSIS
     Route: 030
     Dates: start: 20010606, end: 20030101
  2. AVONEX [Suspect]
     Route: 030
     Dates: start: 20030101

REACTIONS (7)
  - BALANCE DISORDER [None]
  - ASTHENIA [None]
  - FATIGUE [None]
  - ABNORMAL SENSATION IN EYE [None]
  - EYE PAIN [None]
  - LOSS OF CONTROL OF LEGS [None]
  - HEADACHE [None]
